FAERS Safety Report 10538069 (Version 1)
Quarter: 2014Q4

REPORT INFORMATION
  Report Type: Spontaneous
  Country: US (occurrence: US)
  Receive Date: 20141023
  Receipt Date: 20141023
  Transmission Date: 20150529
  Serious: Yes (Hospitalization, Other)
  Sender: FDA-Public Use
  Company Number: US-PFIZER INC-2014291844

PATIENT
  Age: 76 Year
  Sex: Female

DRUGS (3)
  1. LYRICA [Suspect]
     Active Substance: PREGABALIN
     Indication: MUSCLE SPASMS
     Dosage: 100 MG, UP TO 3X/DAY
  2. LYRICA [Suspect]
     Active Substance: PREGABALIN
     Dosage: 100 MG, 1X/DAY EVERY NIGHT BEFORE GOING TO BED
  3. LYRICA [Suspect]
     Active Substance: PREGABALIN
     Dosage: 100 MG, AS NEEDED DURING THE DAY

REACTIONS (2)
  - Myocardial infarction [Unknown]
  - Dizziness [Unknown]
